FAERS Safety Report 19299991 (Version 1)
Quarter: 2021Q2

REPORT INFORMATION
  Report Type: Spontaneous
  Country: PK (occurrence: PK)
  Receive Date: 20210525
  Receipt Date: 20210525
  Transmission Date: 20210717
  Serious: Yes (Death)
  Sender: FDA-Public Use
  Company Number: PK-ROCHE-2834415

PATIENT
  Age: 55 Year
  Sex: Male

DRUGS (2)
  1. MABTHERA [Suspect]
     Active Substance: RITUXIMAB
     Indication: DIFFUSE LARGE B-CELL LYMPHOMA
     Dosage: 5 CYCLES WITH THE INTERVAL OF 3 WEEKS FOR TOTAL 6 CYCLES
     Route: 065
  2. RISTOVA [Suspect]
     Active Substance: RITUXIMAB
     Indication: DIFFUSE LARGE B-CELL LYMPHOMA
     Dosage: 1ST CYCLE
     Route: 041
     Dates: start: 20210310, end: 20210310

REACTIONS (1)
  - Death [Fatal]

NARRATIVE: CASE EVENT DATE: 20210417
